FAERS Safety Report 18642329 (Version 1)
Quarter: 2020Q4

REPORT INFORMATION
  Report Type: Spontaneous
  Country: FR (occurrence: FR)
  Receive Date: 20201221
  Receipt Date: 20201221
  Transmission Date: 20210114
  Serious: Yes (Hospitalization, Other)
  Sender: FDA-Public Use
  Company Number: NVSC2020FR332183

PATIENT
  Sex: Female
  Weight: 45 kg

DRUGS (3)
  1. TACROLIMUS. [Suspect]
     Active Substance: TACROLIMUS
     Indication: IMMUNOSUPPRESSION
     Dosage: 9 MG, QD
     Route: 048
     Dates: start: 20170912
  2. TACROLIMUS. [Suspect]
     Active Substance: TACROLIMUS
     Dosage: 6 MG, QD
     Route: 048
     Dates: start: 20171210
  3. TACROLIMUS. [Suspect]
     Active Substance: TACROLIMUS
     Dosage: 8 MG, QD
     Route: 048
     Dates: start: 20171003

REACTIONS (5)
  - Pyelonephritis [Recovered/Resolved]
  - Polyomavirus-associated nephropathy [Not Recovered/Not Resolved]
  - BK virus infection [Not Recovered/Not Resolved]
  - Pyelonephritis [Recovered/Resolved]
  - BK virus infection [Not Recovered/Not Resolved]

NARRATIVE: CASE EVENT DATE: 20170927
